FAERS Safety Report 21179272 (Version 1)
Quarter: 2022Q3

REPORT INFORMATION
  Report Type: Report from Study
  Country: US (occurrence: US)
  Receive Date: 20220805
  Receipt Date: 20220805
  Transmission Date: 20221027
  Serious: Yes (Other)
  Sender: FDA-Public Use
  Company Number: US-JAZZ-2022-US-014307

PATIENT
  Sex: Male

DRUGS (28)
  1. XYWAV [Suspect]
     Active Substance: CALCIUM OXYBATE\MAGNESIUM OXYBATE\POTASSIUM OXYBATE\SODIUM OXYBATE
     Indication: Narcolepsy
     Dosage: 4.25 GRAM, BID
     Route: 048
     Dates: start: 20211123
  2. XYWAV [Suspect]
     Active Substance: CALCIUM OXYBATE\MAGNESIUM OXYBATE\POTASSIUM OXYBATE\SODIUM OXYBATE
     Indication: Cataplexy
  3. XYWAV [Suspect]
     Active Substance: CALCIUM OXYBATE\MAGNESIUM OXYBATE\POTASSIUM OXYBATE\SODIUM OXYBATE
     Indication: Somnolence
  4. ADALIMUMAB [Concomitant]
     Active Substance: ADALIMUMAB
     Indication: Skin disorder
     Dosage: 40MG/0.4ML UNDER SKIN ONCE A WEEK FOR SKIN DISORDER
  5. VIMPAT [Concomitant]
     Active Substance: LACOSAMIDE
     Indication: Product used for unknown indication
     Dosage: 0000
     Dates: start: 20211206
  6. AMLODIPINE [Concomitant]
     Active Substance: AMLODIPINE BESYLATE
     Indication: Product used for unknown indication
     Dosage: ONE AND HALF TABLET BY MOUTH EVERY DAY FOR HEART
  7. DIVALPROEX SODIUM [Concomitant]
     Active Substance: DIVALPROEX SODIUM
     Indication: Sleep disorder
     Dosage: 4 TABLET BY MOUTH AT BEDTIME FOR SLEEP/MOOD
  8. DOXYCYCLINE HYCLATE [Concomitant]
     Active Substance: DOXYCYCLINE HYCLATE
     Indication: Infection
     Dosage: 1 TABLET BY MOUTH TWICW A DAY FOR INFECTION
  9. LIRAGLUTIDE [Concomitant]
     Active Substance: LIRAGLUTIDE
     Indication: Product used for unknown indication
     Dosage: 6 MILIGRAM/MIRCOGRAM
  10. LIRAGLUTIDE [Concomitant]
     Active Substance: LIRAGLUTIDE
     Dosage: 6 MILIGRAM/MIRCOGRAM
  11. LOSARTAN [Concomitant]
     Active Substance: LOSARTAN
     Indication: Product used for unknown indication
     Dosage: 1 TABLET BY MOUTH EVERY DAY FOR BLOOD PRESSURE
  12. MELATONIN [Concomitant]
     Active Substance: MELATONIN
     Indication: Sleep disorder
     Dosage: 3 MG CAP/TAB BY MOUTH AT BEDTIME AS NEEDED FOR SLEEP
  13. NALTREXONE [Concomitant]
     Active Substance: NALTREXONE
     Indication: Obsessive thoughts
     Dosage: ONE TABLET BY MOUTH FOR OBSESSIVE THOUGHTS
  14. OMEPRAZOLE [Concomitant]
     Active Substance: OMEPRAZOLE
     Indication: Product used for unknown indication
     Dosage: 1 CAPSULE BY MOUTH AS NEEDED FOR STOMACH
  15. PERPHENAZINE [Concomitant]
     Active Substance: PERPHENAZINE
     Indication: Agitation
     Dosage: 1 TABLET BY MOUTH 3 TIMES A DAY FOR AGITAION/ANXIETY
  16. POVIDONE-IODINE [Concomitant]
     Active Substance: POVIDONE-IODINE
     Indication: Infection
     Dosage: SMALL AMOUNT TOPICALLY EVERY DAY FOR INFECTION
  17. PROPRANOLOL HYDROCHLORIDE [Concomitant]
     Active Substance: PROPRANOLOL HYDROCHLORIDE
     Indication: Anxiety
     Dosage: 1 TABLET BY MOUUTH 3 TIMES A DAY FOR ANXIETY
  18. SUMATRIPTAN SUCCINATE [Concomitant]
     Active Substance: SUMATRIPTAN SUCCINATE
     Indication: Product used for unknown indication
     Dosage: UNK
  19. SUMATRIPTAN SUCCINATE [Concomitant]
     Active Substance: SUMATRIPTAN SUCCINATE
     Dosage: UNK
  20. AMPHETAMINE [Concomitant]
     Active Substance: AMPHETAMINE
     Indication: Narcolepsy
     Dosage: 1 TABLET BY MOUTH EVERY MORNING AND NOON AS NEEDED FOR NARCOLEPSY
  21. ERENUMAB-AOOE [Concomitant]
     Active Substance: ERENUMAB-AOOE
     Indication: Migraine
     Dosage: INJECT 70MG SUBCUTANEOUSLY ONCE PER MONTH FOR MIGRAINE PREVENTION
     Route: 058
  22. FLUOCINONIDE [Concomitant]
     Active Substance: FLUOCINONIDE
     Indication: Rash
     Dosage: APPLY THIN FILM TOPICALLY 4 TIMES A DAY FOR RASH
  23. FLUOCINONIDE [Concomitant]
     Active Substance: FLUOCINONIDE
     Indication: Pruritus
  24. HYDROCHLOROTHIAZIDE [Concomitant]
     Active Substance: HYDROCHLOROTHIAZIDE
     Indication: Blood pressure abnormal
     Dosage: 1 TABLET BY MOUTH EVERY DAY FOR BLODD PRESSURE
     Route: 048
  25. POTASSIUM NITRATE [Concomitant]
     Active Substance: POTASSIUM NITRATE
     Indication: Product used for unknown indication
     Dosage: APPLY 1 INCH STRIPTO TEETH AT BEDTIME
  26. PRAZOSIN HYDROCHLORIDE [Concomitant]
     Active Substance: PRAZOSIN HYDROCHLORIDE
     Indication: Nightmare
     Dosage: 1 TABLET BY MOUTH AS NEEDED FOR ANXIETY
  27. RIZATRIPTAN BENZOATE [Concomitant]
     Active Substance: RIZATRIPTAN BENZOATE
     Indication: Migraine
     Dosage: 1 TABLET BY MOUTH ONCE AS NEEDED FOR MIGRAINE
     Route: 048
  28. VALACYCLOVIR HYDROCHLORIDE [Concomitant]
     Active Substance: VALACYCLOVIR HYDROCHLORIDE
     Indication: Infection
     Dosage: 1 TAB BY MOUTH EVERYDAY FOR INFECTION
     Route: 048

REACTIONS (2)
  - Seizure [Unknown]
  - Inflammation [Unknown]
